FAERS Safety Report 7358993-9 (Version None)
Quarter: 2011Q1

REPORT INFORMATION
  Report Type: 
  Country: None (occurrence: None)
  Receive Date: 20110307
  Receipt Date: 20110225
  Transmission Date: 20110831
  Serious: Yes (Other)
  Sender: FDA-Public Use
  Company Number: 1000019076

PATIENT
  Age: 31 Year
  Sex: Female
  Weight: 57 kg

DRUGS (3)
  1. ACETAMINOPHEN [Concomitant]
  2. XANAX [Concomitant]
  3. ESCITALOPRAM (ESCITALOPRAM OXALATE) (TABLETS) [Suspect]
     Indication: DEPRESSION
     Dosage: 10 MG (10 MG, 1 IN 1 D), ORAL
     Route: 048
     Dates: start: 20101207, end: 20110124

REACTIONS (1)
  - METRORRHAGIA [None]
